FAERS Safety Report 17454866 (Version 2)
Quarter: 2020Q1

REPORT INFORMATION
  Report Type: Spontaneous
  Country: ES (occurrence: ES)
  Receive Date: 20200225
  Receipt Date: 20200226
  Transmission Date: 20200409
  Serious: Yes (Life-Threatening, Hospitalization)
  Sender: FDA-Public Use
  Company Number: ES-TEVA-2020-ES-1191535

PATIENT
  Age: 74 Year
  Sex: Female

DRUGS (3)
  1. METOTREXATO (418A) [Suspect]
     Active Substance: METHOTREXATE
     Indication: RHEUMATOID ARTHRITIS
     Dosage: 15MG
     Route: 058
     Dates: start: 20170801, end: 20200118
  2. PREDNISONA (886A) [Suspect]
     Active Substance: PREDNISONE
     Indication: IMMUNOSUPPRESSION
     Dosage: 5 MG
     Route: 048
     Dates: start: 20170801, end: 20200124
  3. OMEPRAZOL (2141A) [Concomitant]
     Active Substance: OMEPRAZOLE
     Dosage: 20 MG
     Route: 048
     Dates: start: 20170801

REACTIONS (3)
  - Interstitial lung disease [Recovered/Resolved]
  - Drug interaction [Unknown]
  - H1N1 influenza [Recovered/Resolved]

NARRATIVE: CASE EVENT DATE: 20200106
